FAERS Safety Report 16249052 (Version 1)
Quarter: 2019Q2

REPORT INFORMATION
  Report Type: Spontaneous
  Country: CA (occurrence: CA)
  Receive Date: 20190429
  Receipt Date: 20190429
  Transmission Date: 20190711
  Serious: Yes (Other)
  Sender: FDA-Public Use
  Company Number: CA-ORION CORPORATION ORION PHARMA-TREX2019-1252

PATIENT
  Age: 73 Year
  Sex: Female

DRUGS (10)
  1. ENBREL [Suspect]
     Active Substance: ETANERCEPT
     Indication: RHEUMATOID ARTHRITIS
     Route: 058
  2. XELJANZ [Suspect]
     Active Substance: TOFACITINIB CITRATE
     Indication: RHEUMATOID ARTHRITIS
     Route: 048
     Dates: start: 20150725, end: 201511
  3. PLAQUENIL [Concomitant]
     Active Substance: HYDROXYCHLOROQUINE SULFATE
     Route: 065
  4. ORENCIA [Suspect]
     Active Substance: ABATACEPT
     Indication: RHEUMATOID ARTHRITIS
     Route: 042
     Dates: end: 2015
  5. PREDNISONE. [Suspect]
     Active Substance: PREDNISONE
     Indication: RHEUMATOID ARTHRITIS
     Route: 048
  6. XELJANZ [Suspect]
     Active Substance: TOFACITINIB CITRATE
     Route: 048
     Dates: start: 201511, end: 2015
  7. GOLD [Suspect]
     Active Substance: GOLD
     Indication: RHEUMATOID ARTHRITIS
     Route: 065
  8. METHOTREXATE (TRADE NAME UNKNOWN) [Suspect]
     Active Substance: METHOTREXATE
     Indication: RHEUMATOID ARTHRITIS
     Route: 065
  9. ENBREL [Suspect]
     Active Substance: ETANERCEPT
     Route: 065
  10. XELJANZ [Suspect]
     Active Substance: TOFACITINIB CITRATE
     Route: 048
     Dates: start: 20150809, end: 2015

REACTIONS (11)
  - Energy increased [Not Recovered/Not Resolved]
  - Lung infection [Unknown]
  - Synovitis [Not Recovered/Not Resolved]
  - Condition aggravated [Not Recovered/Not Resolved]
  - Rheumatoid arthritis [Not Recovered/Not Resolved]
  - Oral pain [Unknown]
  - Malaise [Not Recovered/Not Resolved]
  - Gastrointestinal infection [Not Recovered/Not Resolved]
  - Influenza [Not Recovered/Not Resolved]
  - Urinary tract infection [Unknown]
  - Oropharyngeal pain [Unknown]

NARRATIVE: CASE EVENT DATE: 2015
